FAERS Safety Report 16751763 (Version 4)
Quarter: 2020Q3

REPORT INFORMATION
  Report Type: Spontaneous
  Country: US (occurrence: US)
  Receive Date: 20190828
  Receipt Date: 20200923
  Transmission Date: 20201102
  Serious: Yes (Other)
  Sender: FDA-Public Use
  Company Number: US-PFIZER INC-2019365044

PATIENT
  Age: 65 Year
  Sex: Female
  Weight: 97.52 kg

DRUGS (7)
  1. LYRICA [Suspect]
     Active Substance: PREGABALIN
     Indication: FIBROMYALGIA
     Dosage: 50 MG
  2. METHOTREXATE. [Concomitant]
     Active Substance: METHOTREXATE
     Dosage: 3 DF, 2X/WEEK ((3 TABLETS ON FRIDAY AND SATURDAY OR SATURDAY AND SUNDAY)
     Route: 048
  3. METHOTREXATE. [Concomitant]
     Active Substance: METHOTREXATE
     Indication: SARCOIDOSIS
     Dosage: 6 DF, WEEKLY (6 TABS ONCE WEEKLY)
     Route: 048
     Dates: start: 201804
  4. LYRICA [Suspect]
     Active Substance: PREGABALIN
     Indication: SCIATICA
     Dosage: 100 MG
  5. LYRICA [Suspect]
     Active Substance: PREGABALIN
     Dosage: 200 MG, 2X/DAY
     Route: 048
     Dates: start: 2017
  6. METHOTREXATE. [Concomitant]
     Active Substance: METHOTREXATE
     Dosage: 0.6 ML, WEEKLY (ONCE WEEKLY)
     Route: 058
  7. LYRICA [Suspect]
     Active Substance: PREGABALIN
     Indication: CARPAL TUNNEL SYNDROME
     Dosage: 75 MG

REACTIONS (4)
  - Cubital tunnel syndrome [Not Recovered/Not Resolved]
  - Therapeutic response unexpected [Unknown]
  - Precancerous cells present [Unknown]
  - Pre-existing condition improved [Unknown]
